FAERS Safety Report 10086027 (Version 1)
Quarter: 2014Q2

REPORT INFORMATION
  Report Type: Spontaneous
  Country: None (occurrence: None)
  Receive Date: 20140415
  Receipt Date: 20140415
  Transmission Date: 20141212
  Serious: Yes (Life-Threatening, Hospitalization, Other)
  Sender: FDA-Public Use
  Company Number: 09-AUR-10299

PATIENT
  Age: 71 Year
  Sex: Female

DRUGS (8)
  1. PAROXETINE [Suspect]
     Indication: DEPRESSION
     Dosage: 60 MG, 1 D, UNKNOWN
     Dates: start: 20060718
  2. DILTIAZEM (DILTIAZEM) [Concomitant]
  3. TRIMETAZIDINE (TRIMETAZIDINE) [Concomitant]
  4. LYSINE ACETYLSALICYLATE (ACETYLSALICYLATE LYSINE) [Concomitant]
  5. ROSUVASTATINE (ROSUVASTATIN CALCIUM) [Concomitant]
  6. LATANOPROST (LATANOPROST) (NONE) [Concomitant]
  7. ALPRAZOLAM (ALPRAZOLAM) [Concomitant]
  8. TIANEPTINE (TIANEPTINE) [Concomitant]

REACTIONS (2)
  - Toxic epidermal necrolysis [None]
  - Hepatitis [None]
